FAERS Safety Report 8265724 (Version 2)
Quarter: 2019Q1

REPORT INFORMATION
  Report Type: Spontaneous
  Country: GR (occurrence: GR)
  Receive Date: 20111128
  Receipt Date: 20190121
  Transmission Date: 20190418
  Serious: Yes (Other)
  Sender: FDA-Public Use
  Company Number: US-ASTRAZENECA-2011SE71207

PATIENT
  Age: 59 Year
  Sex: Male

DRUGS (8)
  1. MEROPENEM. [Suspect]
     Active Substance: MEROPENEM
     Indication: KLEBSIELLA INFECTION
     Route: 042
     Dates: start: 201110, end: 201110
  2. ZYVOXID [Suspect]
     Active Substance: LINEZOLID
     Indication: ENTEROCOCCAL INFECTION
     Route: 042
     Dates: start: 201110, end: 201110
  3. ZYVOXID [Suspect]
     Active Substance: LINEZOLID
     Indication: KLEBSIELLA INFECTION
     Route: 042
  4. ZYVOXID [Suspect]
     Active Substance: LINEZOLID
     Indication: ENTEROCOCCAL INFECTION
     Route: 042
  5. MEROPENEM. [Suspect]
     Active Substance: MEROPENEM
     Indication: ENTEROCOCCAL INFECTION
     Route: 042
     Dates: start: 201110, end: 201110
  6. MEROPENEM. [Suspect]
     Active Substance: MEROPENEM
     Indication: ENTEROCOCCAL INFECTION
     Route: 042
  7. MEROPENEM. [Suspect]
     Active Substance: MEROPENEM
     Indication: KLEBSIELLA INFECTION
     Route: 042
  8. ZYVOXID [Suspect]
     Active Substance: LINEZOLID
     Indication: KLEBSIELLA INFECTION
     Route: 042
     Dates: start: 201110, end: 201110

REACTIONS (1)
  - Hypersensitivity [Recovered/Resolved]

NARRATIVE: CASE EVENT DATE: 201110
